FAERS Safety Report 18553056 (Version 1)
Quarter: 2020Q4

REPORT INFORMATION
  Report Type: Spontaneous
  Country: GB (occurrence: GB)
  Receive Date: 20201127
  Receipt Date: 20201127
  Transmission Date: 20210114
  Serious: Yes (Life-Threatening)
  Sender: FDA-Public Use
  Company Number: GB-ACCORD-209127

PATIENT
  Age: 20 Year
  Sex: Male
  Weight: 98.88 kg

DRUGS (3)
  1. SERTRALINE [Concomitant]
     Active Substance: SERTRALINE HYDROCHLORIDE
     Indication: DEPRESSED MOOD
     Dosage: ( TWO 50MG DAILY WHILST 100MG UNAVAILABLE)
     Dates: start: 20201005
  2. AMITRIPTYLINE [Suspect]
     Active Substance: AMITRIPTYLINE
     Indication: BACK PAIN
     Dosage: TAKEN AT NIGHT
     Dates: start: 20201030, end: 20201104
  3. NAPROXEN. [Concomitant]
     Active Substance: NAPROXEN
     Dates: start: 20201027

REACTIONS (2)
  - Loss of consciousness [Recovered/Resolved]
  - Rash [Recovered/Resolved]

NARRATIVE: CASE EVENT DATE: 20201103
